FAERS Safety Report 4456913-8 (Version None)
Quarter: 2004Q3

REPORT INFORMATION
  Report Type: 
  Country: None (occurrence: None)
  Receive Date: 20040923
  Receipt Date: 20040914
  Transmission Date: 20050211
  Serious: Yes (Life-Threatening, Hospitalization)
  Sender: FDA-Public Use
  Company Number: FR-ROCHE-380374

PATIENT
  Age: 40 Year
  Sex: Male
  Weight: 65 kg

DRUGS (6)
  1. CLONAZEPAM [Suspect]
     Indication: DEPRESSION
     Dosage: NO UNITS PROVIDED
     Route: 048
     Dates: start: 19900615, end: 20040816
  2. VIRAFERONPEG [Suspect]
     Indication: HEPATITIS C
     Route: 058
     Dates: start: 20040218, end: 20040811
  3. REBETOL [Suspect]
     Indication: HEPATITIS C
     Route: 048
     Dates: start: 20040218, end: 20040816
  4. VALPROATE SODIUM [Suspect]
     Indication: DEPRESSION
     Dosage: NO UNITS PROVIDED
     Route: 048
     Dates: start: 19900615, end: 20040816
  5. METHADONE HCL [Suspect]
     Indication: DRUG DETOXIFICATION
     Route: 048
     Dates: start: 19970615, end: 20040816
  6. MIRTAZAPINE [Suspect]
     Indication: DEPRESSION
     Dosage: UNITS NOT PROVIDED
     Route: 048
     Dates: start: 19900615, end: 20040816

REACTIONS (4)
  - COMA [None]
  - DEPRESSION [None]
  - POLYTRAUMATISM [None]
  - SUICIDE ATTEMPT [None]
